FAERS Safety Report 16268303 (Version 1)
Quarter: 2019Q2

REPORT INFORMATION
  Report Type: Spontaneous
  Country: NL (occurrence: NL)
  Receive Date: 20190503
  Receipt Date: 20190503
  Transmission Date: 20190711
  Serious: Yes (Hospitalization)
  Sender: FDA-Public Use
  Company Number: NL-ABBVIE-19P-114-2766651-00

PATIENT
  Age: 48 Year
  Sex: Female
  Weight: 58 kg

DRUGS (1)
  1. LUCRIN [Suspect]
     Active Substance: LEUPROLIDE ACETATE
     Indication: PRODUCT USED FOR UNKNOWN INDICATION
     Dosage: UNK
     Route: 065
     Dates: start: 20181110

REACTIONS (10)
  - Pharyngitis [Unknown]
  - Pain in extremity [Unknown]
  - Anosmia [Unknown]
  - Eye inflammation [Unknown]
  - Type 1 diabetes mellitus [Recovered/Resolved with Sequelae]
  - Abnormal behaviour [Unknown]
  - Hormone level abnormal [Unknown]
  - Ageusia [Unknown]
  - Cystitis [Unknown]
  - Confusional state [Unknown]

NARRATIVE: CASE EVENT DATE: 20181207
